FAERS Safety Report 24898131 (Version 1)
Quarter: 2025Q1

REPORT INFORMATION
  Report Type: Spontaneous
  Country: US (occurrence: US)
  Receive Date: 20250129
  Receipt Date: 20250129
  Transmission Date: 20250409
  Serious: No
  Sender: AMNEAL
  Company Number: US-AMNEAL PHARMACEUTICALS-2024-AMRX-03826

PATIENT
  Age: 37 Year
  Sex: Female
  Weight: 80.7 kg

DRUGS (1)
  1. ELURYNG [Suspect]
     Active Substance: ETHINYL ESTRADIOL\ETONOGESTREL
     Indication: Product used for unknown indication
     Route: 067
     Dates: start: 20240911, end: 20240929

REACTIONS (1)
  - Medical device site irritation [Recovered/Resolved]

NARRATIVE: CASE EVENT DATE: 20240914
